FAERS Safety Report 10196647 (Version 1)
Quarter: 2014Q2

REPORT INFORMATION
  Report Type: Spontaneous
  Country: SE (occurrence: SE)
  Receive Date: 20140527
  Receipt Date: 20140527
  Transmission Date: 20141212
  Serious: Yes (Hospitalization)
  Sender: FDA-Public Use
  Company Number: SE-MERCK-1405SWE011850

PATIENT
  Age: 5 Year
  Sex: Male
  Weight: 20 kg

DRUGS (1)
  1. NASONEX [Suspect]
     Indication: NASAL POLYPS
     Dosage: ONE (1) ACTUATION IN EACH NOSTRIL IN THE EVENING
     Route: 045
     Dates: start: 20140214, end: 20140325

REACTIONS (1)
  - Sinusitis [Recovered/Resolved]
